FAERS Safety Report 11463651 (Version 1)
Quarter: 2015Q3

REPORT INFORMATION
  Report Type: Spontaneous
  Country: US (occurrence: US)
  Receive Date: 20150831
  Receipt Date: 20150831
  Transmission Date: 20151125
  Serious: No
  Sender: FDA-Public Use
  Company Number: US-ELI_LILLY_AND_COMPANY-US201104001101

PATIENT
  Age: 54 Year
  Sex: Female

DRUGS (2)
  1. CYMBALTA [Suspect]
     Active Substance: DULOXETINE HYDROCHLORIDE
     Indication: FIBROMYALGIA
     Dosage: 40 MG, EACH EVENING
  2. CYMBALTA [Suspect]
     Active Substance: DULOXETINE HYDROCHLORIDE
     Dosage: 20 MG, UNK

REACTIONS (11)
  - Pain [Unknown]
  - Increased appetite [Unknown]
  - Impaired gastric emptying [Unknown]
  - Bradyphrenia [Unknown]
  - Drug effect incomplete [Unknown]
  - Slow response to stimuli [Unknown]
  - Flat affect [Unknown]
  - Weight decreased [Recovered/Resolved]
  - Apathy [Unknown]
  - Asthenia [Unknown]
  - Poor quality sleep [Unknown]
